FAERS Safety Report 7897460-0 (Version None)
Quarter: 2011Q4

REPORT INFORMATION
  Report Type: 
  Country: None (occurrence: None)
  Receive Date: 20111107
  Receipt Date: 20111031
  Transmission Date: 20120403
  Serious: Yes (Hospitalization, Other)
  Sender: FDA-Public Use
  Company Number: ES-JNJFOC-20110205664

PATIENT
  Age: 59 Year
  Sex: Male
  Weight: 88 kg

DRUGS (7)
  1. TIRODRIL [Concomitant]
     Indication: HYPERTHYROIDISM
     Dates: start: 20091013
  2. METHYLPREDNISOLONE [Concomitant]
     Indication: RHEUMATOID ARTHRITIS
     Dates: start: 20100630
  3. GOLIMUMAB [Suspect]
     Indication: PRODUCT USED FOR UNKNOWN INDICATION
     Route: 058
     Dates: start: 20101118, end: 20110116
  4. MASTICAL D [Concomitant]
     Indication: PROPHYLAXIS
     Dates: start: 20091027
  5. ARAVA [Concomitant]
     Indication: RHEUMATOID ARTHRITIS
     Dates: start: 20100614
  6. CEMIDON [Concomitant]
     Indication: LATENT TUBERCULOSIS
     Dates: start: 20101022
  7. OMEPRAZOLE [Concomitant]
     Indication: GASTROINTESTINAL DISORDER THERAPY
     Dates: start: 20090915

REACTIONS (1)
  - DERMATITIS EXFOLIATIVE [None]
